FAERS Safety Report 21511020 (Version 1)
Quarter: 2022Q4

REPORT INFORMATION
  Report Type: Report from Study
  Country: US (occurrence: US)
  Receive Date: 20221027
  Receipt Date: 20221027
  Transmission Date: 20230112
  Serious: No
  Sender: FDA-Public Use
  Company Number: US-ABBVIE-4177378

PATIENT
  Sex: Female

DRUGS (4)
  1. SKYRIZI [Suspect]
     Active Substance: RISANKIZUMAB-RZAA
     Indication: Product used for unknown indication
     Route: 058
  2. Moderna [Concomitant]
     Indication: COVID-19 immunisation
     Dosage: 1 IN 1 ONCE
     Route: 030
     Dates: start: 20200101, end: 20200101
  3. Moderna [Concomitant]
     Indication: COVID-19 immunisation
     Dosage: 1 IN 1 ONCE
     Route: 030
     Dates: start: 20200115, end: 20200115
  4. Moderna [Concomitant]
     Indication: COVID-19 immunisation
     Dosage: 1 IN 1 ONCE BOOSTER DOSE
     Route: 030
     Dates: start: 20210120, end: 20210120

REACTIONS (2)
  - Tooth fracture [Not Recovered/Not Resolved]
  - Oral infection [Not Recovered/Not Resolved]
